FAERS Safety Report 18443613 (Version 2)
Quarter: 2020Q4

REPORT INFORMATION
  Report Type: Spontaneous
  Country: DE (occurrence: DE)
  Receive Date: 20201029
  Receipt Date: 20201218
  Transmission Date: 20210114
  Serious: Yes (Other)
  Sender: FDA-Public Use
  Company Number: DE-US-PROVELL PHARMACEUTICALS LLC-9193892

PATIENT
  Sex: Male

DRUGS (3)
  1. EUTHYROX [Suspect]
     Active Substance: LEVOTHYROXINE SODIUM
     Indication: POST PROCEDURAL HYPOTHYROIDISM
     Dosage: 200 UG / DAY AND AN ADDITIONAL 25 UG EVERY 3 DAYS
  2. EUTHYROX [Suspect]
     Active Substance: LEVOTHYROXINE SODIUM
     Dosage: REDUCED TO 200 UG DAILY, FURTHER TO CURRENTLY 175UG EVERY OTHER DAY
     Dates: end: 20201028
  3. PROGESTERONE. [Concomitant]
     Active Substance: PROGESTERONE
     Indication: SYMPTOMATIC TREATMENT
     Dosage: GEL

REACTIONS (4)
  - Suicidal ideation [Not Recovered/Not Resolved]
  - Blood thyroid stimulating hormone decreased [Unknown]
  - Depression [Unknown]
  - Blood parathyroid hormone abnormal [Unknown]
